FAERS Safety Report 4375240-0 (Version None)
Quarter: 2004Q2

REPORT INFORMATION
  Report Type: 
  Country: None (occurrence: None)
  Receive Date: 20040604
  Receipt Date: 20040526
  Transmission Date: 20050107
  Serious: Yes (Death)
  Sender: FDA-Public Use
  Company Number: USA-2004-0015354

PATIENT
  Age: 28 Year
  Sex: Male
  Weight: 75.3 kg

DRUGS (3)
  1. OXYCONTIN [Suspect]
     Indication: PAIN
  2. METHADONE (METHADONE) [Suspect]
     Indication: PAIN
  3. DIPHENHYDRAMINE HCL [Concomitant]

REACTIONS (10)
  - ACCIDENTAL OVERDOSE [None]
  - CHRONIC HEPATITIS [None]
  - COMA [None]
  - CONTUSION [None]
  - MEDICATION ERROR [None]
  - MULTIPLE DRUG OVERDOSE [None]
  - PNEUMONITIS [None]
  - PULMONARY CONGESTION [None]
  - PULMONARY GRANULOMA [None]
  - PULMONARY OEDEMA [None]
